FAERS Safety Report 9196414 (Version 1)
Quarter: 2013Q1

REPORT INFORMATION
  Report Type: Spontaneous
  Country: BR (occurrence: BR)
  Receive Date: 20130328
  Receipt Date: 20130328
  Transmission Date: 20140127
  Serious: Yes (Hospitalization, Other)
  Sender: FDA-Public Use
  Company Number: BR-PFIZER INC-2013100314

PATIENT
  Sex: Female

DRUGS (2)
  1. CHAMPIX [Suspect]
     Dosage: UNK
  2. FUNGONAX [Concomitant]
     Indication: PULMONARY MYCOSIS
     Dosage: UNK

REACTIONS (2)
  - Pneumonia [Unknown]
  - Nausea [Unknown]
